FAERS Safety Report 19656861 (Version 1)
Quarter: 2021Q3

REPORT INFORMATION
  Report Type: Other
  Country: CA (occurrence: CA)
  Receive Date: 20210804
  Receipt Date: 20210804
  Transmission Date: 20211014
  Serious: Yes (Other)
  Sender: FDA-Public Use
  Company Number: CA-ROCHE-2291104

PATIENT
  Age: 53 Year
  Sex: Female

DRUGS (12)
  1. PREVACID [Concomitant]
     Active Substance: LANSOPRAZOLE
  2. RITUXAN [Suspect]
     Active Substance: RITUXIMAB
     Indication: SCLERODERMA
     Route: 042
     Dates: start: 20190321
  3. PREDNISONE. [Concomitant]
     Active Substance: PREDNISONE
  4. CELLCEPT [Suspect]
     Active Substance: MYCOPHENOLATE MOFETIL\MYCOPHENOLATE MOFETIL HYDROCHLORIDE
     Indication: INTERSTITIAL LUNG DISEASE
  5. DOMPERIDONE [Concomitant]
     Active Substance: DOMPERIDONE
  6. ZOPICLONE [Concomitant]
     Active Substance: ZOPICLONE
  7. DIPHENHYDRAMINE HCL [Concomitant]
     Active Substance: DIPHENHYDRAMINE HYDROCHLORIDE
     Indication: PREMEDICATION
     Route: 048
     Dates: start: 20190321
  8. ACETAMINOPHEN. [Concomitant]
     Active Substance: ACETAMINOPHEN
     Indication: PREMEDICATION
     Route: 048
     Dates: start: 20190321
  9. AMLODIPINE [Concomitant]
     Active Substance: AMLODIPINE BESYLATE
     Dates: end: 2019
  10. CELLCEPT [Suspect]
     Active Substance: MYCOPHENOLATE MOFETIL\MYCOPHENOLATE MOFETIL HYDROCHLORIDE
     Indication: SYSTEMIC SCLERODERMA
     Route: 065
  11. METHYLPREDNISOLONE. [Concomitant]
     Active Substance: METHYLPREDNISOLONE
     Indication: PREMEDICATION
     Route: 042
     Dates: start: 20190321
  12. MYFORTIC [Concomitant]
     Active Substance: MYCOPHENOLATE SODIUM

REACTIONS (14)
  - Dizziness [Unknown]
  - Off label use [Unknown]
  - Gastrointestinal bacterial overgrowth [Unknown]
  - Blood pressure decreased [Unknown]
  - Drug hypersensitivity [Unknown]
  - Chest discomfort [Recovered/Resolved]
  - Chest discomfort [Unknown]
  - Nausea [Not Recovered/Not Resolved]
  - Swollen joint count [Unknown]
  - Disease progression [Not Recovered/Not Resolved]
  - Flushing [Recovered/Resolved]
  - Inflammation [Unknown]
  - Vomiting [Not Recovered/Not Resolved]
  - Drug intolerance [Not Recovered/Not Resolved]

NARRATIVE: CASE EVENT DATE: 20190321
